FAERS Safety Report 21467894 (Version 1)
Quarter: 2022Q4

REPORT INFORMATION
  Report Type: Spontaneous
  Country: US (occurrence: US)
  Receive Date: 20221017
  Receipt Date: 20221017
  Transmission Date: 20230113
  Serious: No
  Sender: FDA-Public Use
  Company Number: US-ALLERGAN-2222446US

PATIENT
  Sex: Female

DRUGS (1)
  1. LINZESS [Suspect]
     Active Substance: LINACLOTIDE
     Indication: Constipation
     Dosage: UNK, PRN
     Route: 048
     Dates: start: 2019, end: 2020

REACTIONS (2)
  - Inappropriate schedule of product administration [Unknown]
  - Defaecation urgency [Recovered/Resolved]

NARRATIVE: CASE EVENT DATE: 20190101
